FAERS Safety Report 5255452-4 (Version None)
Quarter: 2007Q1

REPORT INFORMATION
  Report Type: 
  Country: None (occurrence: None)
  Receive Date: 20070305
  Receipt Date: 20070227
  Transmission Date: 20070707
  Serious: Yes (Life-Threatening)
  Sender: FDA-Public Use
  Company Number: 2006AP01959

PATIENT
  Age: 5 Year
  Sex: Female

DRUGS (11)
  1. FOSCAVIR [Suspect]
     Indication: CYTOMEGALOVIRUS VIRAEMIA
     Route: 042
     Dates: start: 20060330, end: 20060409
  2. FOSCAVIR [Suspect]
     Route: 042
     Dates: start: 20060412, end: 20060424
  3. FOSCAVIR [Suspect]
     Route: 042
     Dates: start: 20060516, end: 20060517
  4. GASTER [Concomitant]
  5. DORMICUM [Concomitant]
  6. PERDIPINE [Concomitant]
  7. ZOVIRAX [Concomitant]
  8. OMEGACIN [Concomitant]
  9. PANTOSIN [Concomitant]
  10. ELASPOL [Concomitant]
  11. ORGARAN [Concomitant]

REACTIONS (2)
  - DEPRESSED LEVEL OF CONSCIOUSNESS [None]
  - PULMONARY ALVEOLAR HAEMORRHAGE [None]
